FAERS Safety Report 25292658 (Version 3)
Quarter: 2025Q2

REPORT INFORMATION
  Report Type: Spontaneous
  Country: US (occurrence: US)
  Receive Date: 20250510
  Receipt Date: 20250526
  Transmission Date: 20250716
  Serious: No
  Sender: SANOFI AVENTIS
  Company Number: US-SA-2025SA123392

PATIENT
  Age: 74 Year
  Sex: Female

DRUGS (2)
  1. DUPIXENT [Suspect]
     Active Substance: DUPILUMAB
     Indication: Dermatitis
     Route: 058
     Dates: start: 20250409, end: 20250409
  2. DUPIXENT [Suspect]
     Active Substance: DUPILUMAB
     Indication: Dermatitis atopic
     Route: 058
     Dates: start: 20250424

REACTIONS (21)
  - Influenza like illness [Recovered/Resolved]
  - Loss of personal independence in daily activities [Unknown]
  - Synovial cyst [Unknown]
  - Gait inability [Unknown]
  - Arthralgia [Unknown]
  - Joint swelling [Unknown]
  - Weight decreased [Unknown]
  - Heart rate increased [Unknown]
  - Fatigue [Unknown]
  - Muscular weakness [Recovered/Resolved]
  - Malaise [Recovered/Resolved]
  - Generalised oedema [Unknown]
  - Tremor [Unknown]
  - Dizziness [Unknown]
  - Myalgia [Unknown]
  - Pain in extremity [Recovered/Resolved]
  - Pruritus [Recovering/Resolving]
  - Disease recurrence [Recovering/Resolving]
  - Injection site erythema [Unknown]
  - Injection site bruising [Unknown]
  - Product use in unapproved indication [Unknown]

NARRATIVE: CASE EVENT DATE: 20250410
